FAERS Safety Report 18524843 (Version 1)
Quarter: 2020Q4

REPORT INFORMATION
  Report Type: Spontaneous
  Country: US (occurrence: US)
  Receive Date: 20201119
  Receipt Date: 20201119
  Transmission Date: 20210114
  Serious: Yes (Disabling, Other)
  Sender: FDA-Public Use
  Company Number: US-PURDUE-USA-2020-0165159

PATIENT
  Sex: Male

DRUGS (13)
  1. OXYCONTIN [Suspect]
     Active Substance: OXYCODONE HYDROCHLORIDE
     Indication: PRODUCT USED FOR UNKNOWN INDICATION
     Dosage: UNK
     Route: 048
  2. OXYCODONE HCL TABLETS (RHODES 91-490) [Suspect]
     Active Substance: OXYCODONE HYDROCHLORIDE
     Indication: PRODUCT USED FOR UNKNOWN INDICATION
     Dosage: UNK
     Route: 048
  3. OXYCODONE HYDROCHLORIDE (SIMILAR TO NDA 22-272) [Suspect]
     Active Substance: OXYCODONE HYDROCHLORIDE
     Indication: PAIN
     Dosage: UNK
     Route: 048
  4. CODEINE [Suspect]
     Active Substance: CODEINE
     Indication: FOOT OPERATION
     Dosage: 3 AND 4
     Route: 065
     Dates: start: 1976, end: 1979
  5. CODEINE [Suspect]
     Active Substance: CODEINE
     Indication: INTERVERTEBRAL DISC DEGENERATION
     Dosage: 10 UNK, UNK
     Route: 065
     Dates: start: 1980, end: 2020
  6. OXYCODONE HCL CR TABLETS (SIMILAR TO NDA 22-272) [Suspect]
     Active Substance: OXYCODONE HYDROCHLORIDE
     Indication: PRODUCT USED FOR UNKNOWN INDICATION
     Dosage: UNK
     Route: 048
  7. MORPHINE SULFATE EXTENDED-RELEASE TABLETS (RHODES 74-769, 74-862) [Suspect]
     Active Substance: MORPHINE SULFATE
     Indication: PRODUCT USED FOR UNKNOWN INDICATION
     Dosage: UNK
     Route: 048
  8. HYDROCODONE BITARTRATE (SIMILAR TO IND 59,175) [Suspect]
     Active Substance: HYDROCODONE BITARTRATE
     Indication: INTERVERTEBRAL DISC DEGENERATION
     Dosage: 5,7.5
     Route: 048
  9. OXYCODONE/ ACETAMINOPHEN TABLETS [Suspect]
     Active Substance: ACETAMINOPHEN\OXYCODONE HYDROCHLORIDE
     Indication: PRODUCT USED FOR UNKNOWN INDICATION
     Dosage: UNK
     Route: 048
  10. HYDROCODONE BITARTRATE AND ACETAMINOPHEN [Suspect]
     Active Substance: ACETAMINOPHEN\HYDROCODONE BITARTRATE
     Indication: PRODUCT USED FOR UNKNOWN INDICATION
     Dosage: UNK
     Route: 048
  11. TYLENOL [Suspect]
     Active Substance: ACETAMINOPHEN
     Indication: PRODUCT USED FOR UNKNOWN INDICATION
     Dosage: 3
     Route: 065
     Dates: start: 1980, end: 1990
  12. CODEINE [Suspect]
     Active Substance: CODEINE
     Indication: KNEE ARTHROPLASTY
     Dosage: 4
     Route: 065
     Dates: start: 1980
  13. HYDROCODONE BITARTRATE (SIMILAR TO IND 59,175) [Suspect]
     Active Substance: HYDROCODONE BITARTRATE
     Dosage: 7.5 UNK, UNK
     Route: 048
     Dates: start: 1980, end: 2020

REACTIONS (16)
  - Myocardial infarction [Unknown]
  - Suicidal behaviour [Unknown]
  - Foot operation [Unknown]
  - Post-traumatic stress disorder [Not Recovered/Not Resolved]
  - Drug dependence [Unknown]
  - Developmental delay [Unknown]
  - General physical health deterioration [Unknown]
  - Depression [Unknown]
  - Anxiety [Unknown]
  - Knee arthroplasty [Unknown]
  - Cardiac disorder [Unknown]
  - Drug withdrawal syndrome [Unknown]
  - Back injury [Unknown]
  - Disability [Unknown]
  - Intervertebral disc degeneration [Unknown]
  - Emotional distress [Unknown]

NARRATIVE: CASE EVENT DATE: 1976
